FAERS Safety Report 5424897-1 (Version None)
Quarter: 2007Q3

REPORT INFORMATION
  Report Type: 
  Country: None (occurrence: None)
  Receive Date: 20070824
  Receipt Date: 20070815
  Transmission Date: 20080115
  Serious: Yes (Hospitalization, Disabling)
  Sender: FDA-Public Use
  Company Number: US-JNJFOC-20060200117

PATIENT
  Sex: Female
  Weight: 56.25 kg

DRUGS (19)
  1. INFLIXIMAB [Suspect]
     Route: 042
  2. INFLIXIMAB [Suspect]
     Route: 042
  3. INFLIXIMAB [Suspect]
     Route: 042
  4. INFLIXIMAB [Suspect]
     Route: 042
  5. INFLIXIMAB [Suspect]
     Route: 042
  6. INFLIXIMAB [Suspect]
     Route: 042
  7. INFLIXIMAB [Suspect]
     Route: 042
  8. INFLIXIMAB [Suspect]
     Route: 042
  9. INFLIXIMAB [Suspect]
     Route: 042
  10. INFLIXIMAB [Suspect]
     Route: 042
  11. INFLIXIMAB [Suspect]
     Indication: CROHN'S DISEASE
     Route: 042
  12. HUMIRA [Suspect]
     Indication: CROHN'S DISEASE
  13. MESALAMINE [Concomitant]
     Indication: CROHN'S DISEASE
  14. PREDNISONE TAB [Concomitant]
     Indication: CROHN'S DISEASE
  15. BELLADONNA [Concomitant]
     Indication: CROHN'S DISEASE
  16. TPN [Concomitant]
     Indication: CROHN'S DISEASE
  17. OPIUM [Concomitant]
     Indication: CROHN'S DISEASE
  18. METHOTREXATE [Concomitant]
     Indication: CROHN'S DISEASE
  19. LEUKINE [Concomitant]
     Indication: CROHN'S DISEASE

REACTIONS (3)
  - CROHN'S DISEASE [None]
  - DEHYDRATION [None]
  - SHORT-BOWEL SYNDROME [None]
